FAERS Safety Report 9687249 (Version 4)
Quarter: 2014Q1

REPORT INFORMATION
  Report Type: Spontaneous
  Country: GB (occurrence: GB)
  Receive Date: 20131113
  Receipt Date: 20140218
  Transmission Date: 20141002
  Serious: Yes (Other)
  Sender: FDA-Public Use
  Company Number: GB-JNJFOC-20131103230

PATIENT
  Age: 49 Year
  Sex: Female

DRUGS (10)
  1. IBUPROFEN [Suspect]
     Route: 048
  2. IBUPROFEN [Suspect]
     Indication: PAIN IN EXTREMITY
     Route: 048
     Dates: end: 20131029
  3. CITALOPRAM [Interacting]
     Indication: DEPRESSION
     Dosage: UNIT DOSE
     Route: 065
  4. DIAZEPAM [Concomitant]
     Indication: ANXIETY
     Route: 065
  5. FEMSEVEN NOS [Concomitant]
     Indication: HORMONE REPLACEMENT THERAPY
     Route: 065
  6. PARACETAMOL [Concomitant]
     Indication: PRODUCT USED FOR UNKNOWN INDICATION
     Route: 065
  7. QVAR [Concomitant]
     Indication: ASTHMA
     Route: 065
  8. SALBUTAMOL [Concomitant]
     Indication: ASTHMA
     Route: 065
  9. SEREVENT (SALMETEROL XINAFOATE) [Concomitant]
     Indication: ASTHMA
     Route: 065
  10. TEMAZEPAM [Concomitant]
     Indication: ANXIETY
     Route: 065

REACTIONS (2)
  - Rectal haemorrhage [Recovered/Resolved]
  - Drug interaction [Unknown]
